FAERS Safety Report 15243014 (Version 1)
Quarter: 2018Q3

REPORT INFORMATION
  Report Type: Spontaneous
  Country: US (occurrence: US)
  Receive Date: 20180712
  Receipt Date: 20180712
  Transmission Date: 20181010
  Serious: No
  Sender: FDA-Public Use
  Company Number: None

PATIENT
  Age: 85 Year
  Sex: Male
  Weight: 111.13 kg

DRUGS (8)
  1. FINASTERIDE. [Suspect]
     Active Substance: FINASTERIDE
     Indication: DRUG THERAPY
     Dosage: ?          QUANTITY:1 DF DOSAGE FORM;?
     Route: 048
     Dates: start: 201802
  2. GRAPESEED EXTRACT [Concomitant]
  3. MEGA RED JOINT CARE [Concomitant]
  4. CARVEDILOL. [Concomitant]
     Active Substance: CARVEDILOL
  5. WARFARIN [Concomitant]
     Active Substance: WARFARIN
  6. GEMFIBROZIL. [Concomitant]
     Active Substance: GEMFIBROZIL
  7. LEVOTHYROXINE. [Concomitant]
     Active Substance: LEVOTHYROXINE
  8. PROSTATE HEALTH [Concomitant]

REACTIONS (4)
  - Nipple pain [None]
  - Hyperaesthesia [None]
  - Nipple disorder [None]
  - Nipple enlargement [None]
